FAERS Safety Report 21642700 (Version 1)
Quarter: 2022Q4

REPORT INFORMATION
  Report Type: Spontaneous
  Country: US (occurrence: None)
  Receive Date: 20221125
  Receipt Date: 20221125
  Transmission Date: 20230113
  Serious: No
  Sender: FDA-Public Use
  Company Number: 2022A359342

PATIENT
  Age: 69 Year
  Sex: Female

DRUGS (1)
  1. PULMICORT TURBUHALER [Suspect]
     Active Substance: BUDESONIDE
     Route: 055
     Dates: start: 2022

REACTIONS (7)
  - Malaise [Unknown]
  - Illness [Unknown]
  - Pleural effusion [Unknown]
  - Wheezing [Unknown]
  - Device use issue [Unknown]
  - Wrong technique in device usage process [Unknown]
  - Intentional product use issue [Unknown]

NARRATIVE: CASE EVENT DATE: 20220101
